FAERS Safety Report 17675011 (Version 1)
Quarter: 2020Q2

REPORT INFORMATION
  Report Type: Spontaneous
  Country: US (occurrence: US)
  Receive Date: 20200416
  Receipt Date: 20200416
  Transmission Date: 20200714
  Serious: Yes (Life-Threatening, Hospitalization)
  Sender: FDA-Public Use
  Company Number: US-MYLANLABS-2020M1037256

PATIENT
  Age: 4 Year
  Sex: Male
  Weight: 18 kg

DRUGS (2)
  1. SUCCINYLCHOLINE                    /00057701/ [Suspect]
     Active Substance: SUCCINYLCHOLINE
     Indication: ENDOTRACHEAL INTUBATION
     Route: 065
  2. ETOMIDATE. [Suspect]
     Active Substance: ETOMIDATE
     Indication: ENDOTRACHEAL INTUBATION
     Dosage: 20ML/KG
     Route: 065

REACTIONS (1)
  - Drug ineffective [Unknown]
